FAERS Safety Report 24064592 (Version 2)
Quarter: 2024Q3

REPORT INFORMATION
  Report Type: Report from Study
  Country: US (occurrence: US)
  Receive Date: 20240709
  Receipt Date: 20240709
  Transmission Date: 20241016
  Serious: Yes (Other)
  Sender: PFIZER
  Company Number: US-KINGPHARMUSA00001-K201100486

PATIENT
  Age: 29 Year
  Sex: Female

DRUGS (2)
  1. THROMBIN-JMI [Suspect]
     Active Substance: THROMBIN
     Indication: Procedural haemorrhage
     Dosage: UNK, SINGLE
     Route: 061
  2. DEVICE\GELATIN [Suspect]
     Active Substance: DEVICE\GELATIN
     Indication: Procedural haemorrhage
     Dosage: UNK

REACTIONS (3)
  - Incorrect route of product administration [Recovering/Resolving]
  - Cavernous sinus thrombosis [Recovering/Resolving]
  - Procedural headache [Recovering/Resolving]
